FAERS Safety Report 7422154-5 (Version None)
Quarter: 2011Q2

REPORT INFORMATION
  Report Type: 
  Country: None (occurrence: None)
  Receive Date: 20110418
  Receipt Date: 20101223
  Transmission Date: 20111010
  Serious: Yes (Hospitalization)
  Sender: FDA-Public Use
  Company Number: US-BAYER-201031470NA

PATIENT
  Age: 35 Year
  Sex: Female
  Weight: 72.109 kg

DRUGS (3)
  1. YAZ [Suspect]
     Indication: CONTRACEPTION
     Dosage: UNK
     Route: 048
     Dates: start: 20070201, end: 20070701
  2. TYLENOL REGULAR [Concomitant]
     Indication: PAIN
  3. UNISOM [Concomitant]
     Indication: INSOMNIA

REACTIONS (5)
  - CHOLECYSTITIS [None]
  - BILIARY COLIC [None]
  - CHOLELITHIASIS [None]
  - CHOLECYSTITIS CHRONIC [None]
  - MENTAL DISORDER [None]
